FAERS Safety Report 21910393 (Version 1)
Quarter: 2023Q1

REPORT INFORMATION
  Report Type: Spontaneous
  Country: US (occurrence: US)
  Receive Date: 20230125
  Receipt Date: 20230125
  Transmission Date: 20230417
  Serious: No
  Sender: FDA-Public Use
  Company Number: US-ALLERGAN-2211508US

PATIENT
  Age: 63 Year
  Sex: Female

DRUGS (12)
  1. BOTOX [Suspect]
     Active Substance: ONABOTULINUMTOXINA
     Indication: Migraine
     Dosage: 200 UNITS, SINGLE
     Dates: start: 20220105, end: 20220105
  2. BOTOX [Suspect]
     Active Substance: ONABOTULINUMTOXINA
     Dosage: UNK UNK, SINGLE
     Dates: start: 20211006, end: 20211006
  3. BOTOX [Suspect]
     Active Substance: ONABOTULINUMTOXINA
     Dosage: UNK UNK, SINGLE
     Dates: start: 20211006, end: 20211006
  4. BOTOX [Suspect]
     Active Substance: ONABOTULINUMTOXINA
     Dosage: UNK UNK, SINGLE
     Dates: start: 20211006, end: 20211006
  5. MESALAMINE [Concomitant]
     Active Substance: MESALAMINE
     Indication: Colitis ulcerative
     Dosage: 1.2 MG TABLETS 4 TIMES PER DAY
     Route: 048
     Dates: start: 2006
  6. DICYCLOMINE CO [Concomitant]
     Indication: Colitis ulcerative
     Dosage: 10 MG, PRN
     Route: 048
     Dates: start: 2006
  7. COENZYME Q10 [Concomitant]
     Active Substance: DIETARY SUPPLEMENT\UBIDECARENONE
     Indication: Vitamin supplementation
     Dosage: 200 MG, QD
     Dates: start: 2012
  8. VITAMIN B12 [Concomitant]
     Active Substance: CYANOCOBALAMIN
     Indication: Migraine
     Dosage: 200 MG ONE A DAY AT DINNER
     Route: 048
     Dates: start: 2012
  9. VITAMIN C + ROSEHIP [Concomitant]
     Indication: Vitamin supplementation
     Dosage: 500 MG, QD
     Route: 048
     Dates: start: 2012
  10. IRON\VITAMINS [Concomitant]
     Active Substance: IRON\VITAMINS
     Indication: Vitamin supplementation
     Dosage: 1 DF, QD
     Route: 048
     Dates: start: 2012
  11. SUMATRIPTAN [Concomitant]
     Active Substance: SUMATRIPTAN
     Indication: Migraine
     Dosage: 20 MG ONE SPRAY AT ONSET OF MIGRAINE
     Route: 045
     Dates: start: 2012
  12. SUMATRIPTAN [Concomitant]
     Active Substance: SUMATRIPTAN
     Dosage: 100 TB 2 HRS AFTER THE NASAL SPRAY IF IT DID NOT WORK
     Route: 048
     Dates: start: 2012

REACTIONS (3)
  - Injection site pain [Not Recovered/Not Resolved]
  - Headache [Unknown]
  - Drug ineffective [Unknown]

NARRATIVE: CASE EVENT DATE: 20211006
